FAERS Safety Report 21128449 (Version 1)
Quarter: 2022Q3

REPORT INFORMATION
  Report Type: Spontaneous
  Country: CN (occurrence: CN)
  Receive Date: 20220725
  Receipt Date: 20220725
  Transmission Date: 20221026
  Serious: Yes (Hospitalization, Other)
  Sender: FDA-Public Use
  Company Number: CN-BAYER-2022A098863

PATIENT
  Age: 73 Year
  Sex: Male
  Weight: 56 kg

DRUGS (1)
  1. GLUCOBAY [Suspect]
     Active Substance: ACARBOSE
     Indication: Blood glucose increased
     Dosage: 50 MG, TID
     Route: 048
     Dates: start: 20220610, end: 20220620

REACTIONS (8)
  - Cerebral infarction [None]
  - Flatulence [Recovering/Resolving]
  - Depressed mood [None]
  - Decreased appetite [None]
  - Poor quality sleep [None]
  - Asthenia [None]
  - Anal incontinence [None]
  - Urinary incontinence [None]

NARRATIVE: CASE EVENT DATE: 20220601
